FAERS Safety Report 10227689 (Version 1)
Quarter: 2014Q2

REPORT INFORMATION
  Report Type: Spontaneous
  Country: US (occurrence: None)
  Receive Date: 20140609
  Receipt Date: 20140609
  Transmission Date: 20141212
  Serious: Yes (Life-Threatening, Hospitalization)
  Sender: FDA-Public Use
  Company Number: None

PATIENT
  Age: 19 Day
  Sex: Male
  Weight: 102.06 kg

DRUGS (1)
  1. GADAVIST [Suspect]

REACTIONS (5)
  - Contrast media reaction [None]
  - Blood pressure decreased [None]
  - Pulmonary oedema [None]
  - Dyspnoea [None]
  - Vomiting [None]
